FAERS Safety Report 9384135 (Version 1)
Quarter: 2013Q3

REPORT INFORMATION
  Report Type: Spontaneous
  Country: BR (occurrence: BR)
  Receive Date: 20130705
  Receipt Date: 20130705
  Transmission Date: 20140515
  Serious: Yes (Other)
  Sender: FDA-Public Use
  Company Number: BR-AMGEN-BRASP2013046367

PATIENT
  Age: 47 Year
  Sex: Female
  Weight: 56 kg

DRUGS (4)
  1. ENBREL [Suspect]
     Indication: RHEUMATOID ARTHRITIS
     Dosage: 25 MG, 2X/WEEK
     Route: 058
     Dates: end: 201212
  2. PREDNISONE [Concomitant]
     Dosage: 2 TABLETS, A DAY
  3. METHOTREXATE [Concomitant]
     Dosage: 1X/WEEK
  4. DICLOFENAC [Concomitant]
     Dosage: 2 TABLETS, A DAY

REACTIONS (2)
  - Arthritis [Unknown]
  - Tuberculosis [Unknown]
